FAERS Safety Report 6956957-8 (Version None)
Quarter: 2010Q3

REPORT INFORMATION
  Report Type: 
  Country: None (occurrence: None)
  Receive Date: 20100827
  Receipt Date: 20100827
  Transmission Date: 20110219
  Serious: Yes (Life-Threatening, Hospitalization)
  Sender: FDA-Public Use
  Company Number: None

PATIENT
  Age: 43 Year
  Sex: Female
  Weight: 133.8111 kg

DRUGS (12)
  1. ACETAMINOPHEN [Suspect]
     Indication: SUICIDAL IDEATION
     Dosage: 40000 MG ONCE PO
     Route: 048
     Dates: start: 20100727, end: 20100727
  2. PIOGLITAZONE [Suspect]
     Indication: ASTHMA
     Dosage: 45 MG ONCE PO
     Route: 048
     Dates: start: 20100712, end: 20100823
  3. ADVAIR DISKUS 100/50 [Concomitant]
  4. ALBUTEROL [Concomitant]
  5. XANAX [Concomitant]
  6. ALLEGRA [Concomitant]
  7. PROZAC [Concomitant]
  8. SYNTHROID [Concomitant]
  9. TOPAMAX [Concomitant]
  10. REMERON [Concomitant]
  11. NEXIUM [Concomitant]
  12. PERIACTIN [Concomitant]

REACTIONS (3)
  - DRUG LEVEL INCREASED [None]
  - MEDICATION ERROR [None]
  - SUICIDAL IDEATION [None]
